FAERS Safety Report 8198882-3 (Version None)
Quarter: 2012Q1

REPORT INFORMATION
  Report Type: 
  Country: None (occurrence: None)
  Receive Date: 20120309
  Receipt Date: 20120228
  Transmission Date: 20120608
  Serious: Yes (Other)
  Sender: FDA-Public Use
  Company Number: CA-BRISTOL-MYERS SQUIBB COMPANY-16429144

PATIENT
  Age: 64 Year
  Sex: Male
  Weight: 95 kg

DRUGS (5)
  1. AVALIDE [Suspect]
     Indication: HYPERTENSION
     Dosage: 1 DF = 300MG/12.5MG
     Route: 048
     Dates: start: 20120213, end: 20120216
  2. INDOMETHACIN [Concomitant]
     Indication: ARTHRALGIA
     Dosage: STOPPED }1 YEAR
     Route: 048
  3. IBUPROFEN [Concomitant]
     Route: 048
  4. AVALIDE [Suspect]
     Indication: HYPERTENSION
     Dosage: 1DF:150/12.5MG;09FB12-12FB,
     Route: 048
     Dates: start: 20120209, end: 20120212
  5. ACETAMINOPHEN [Concomitant]
     Route: 048

REACTIONS (8)
  - BREAST SWELLING [None]
  - FEELING ABNORMAL [None]
  - ERECTILE DYSFUNCTION [None]
  - ROAD TRAFFIC ACCIDENT [None]
  - EXPIRED DRUG ADMINISTERED [None]
  - BLADDER DISCOMFORT [None]
  - BLOOD PRESSURE INCREASED [None]
  - SKIN DISCOLOURATION [None]
